FAERS Safety Report 11308052 (Version 2)
Quarter: 2015Q4

REPORT INFORMATION
  Report Type: Spontaneous
  Country: CA (occurrence: CA)
  Receive Date: 20150724
  Receipt Date: 20151104
  Transmission Date: 20160304
  Serious: Yes (Hospitalization)
  Sender: FDA-Public Use
  Company Number: CA-009507513-1507CAN007174

PATIENT
  Age: 66 Year
  Sex: Female

DRUGS (3)
  1. INTRON A [Suspect]
     Active Substance: INTERFERON ALFA-2B
     Dosage: 1 MILLION IU, EVERY MONDAY, WEDNESDAY AND FRIDAY
     Route: 058
  2. OCTREOTIDE. [Concomitant]
     Active Substance: OCTREOTIDE
     Dosage: 80 MG, Q3W
     Route: 030
     Dates: start: 2006
  3. INTRON A [Suspect]
     Active Substance: INTERFERON ALFA-2B
     Indication: NEUROENDOCRINE CARCINOMA METASTATIC
     Dosage: 1 MILLION IU, EVERY MONDAY, WEDNESDAY AND FRIDAY
     Route: 058
     Dates: start: 20080718

REACTIONS (7)
  - Coronary artery disease [Recovering/Resolving]
  - Asthenia [Recovering/Resolving]
  - Night sweats [Recovering/Resolving]
  - Abdominal pain [Recovering/Resolving]
  - Off label use [Unknown]
  - Drug dose omission [Unknown]
  - Cardiac failure congestive [Unknown]

NARRATIVE: CASE EVENT DATE: 20080718
